FAERS Safety Report 15394767 (Version 1)
Quarter: 2018Q3

REPORT INFORMATION
  Report Type: Spontaneous
  Country: NL (occurrence: NL)
  Receive Date: 20180918
  Receipt Date: 20180918
  Transmission Date: 20181010
  Serious: Yes (Congenital Anomaly, Other)
  Sender: FDA-Public Use
  Company Number: NL-SUN PHARMACEUTICAL INDUSTRIES LTD-2018RR-184730

PATIENT
  Sex: Male
  Weight: 3 kg

DRUGS (1)
  1. VENLAFAXINE [Suspect]
     Active Substance: VENLAFAXINE HYDROCHLORIDE
     Indication: ANXIETY
     Dosage: 1DD 75MG
     Route: 064

REACTIONS (2)
  - Maternal exposure during pregnancy [Unknown]
  - Neonatal testicular torsion [Not Recovered/Not Resolved]

NARRATIVE: CASE EVENT DATE: 20180816
